FAERS Safety Report 25790102 (Version 1)
Quarter: 2025Q3

REPORT INFORMATION
  Report Type: Spontaneous
  Country: US (occurrence: US)
  Receive Date: 20250911
  Receipt Date: 20250911
  Transmission Date: 20251020
  Serious: No
  Sender: GLENMARK
  Company Number: US-GLENMARK PHARMACEUTICALS-2025GMK097691

PATIENT

DRUGS (2)
  1. GABAPENTIN [Suspect]
     Active Substance: GABAPENTIN
     Indication: Nervous system disorder
     Dosage: 1 DOSAGE FORM, BID (TAKE 1 TABLET BY MOUTH TWICE A DAY)
     Route: 048
  2. GABAPENTIN [Suspect]
     Active Substance: GABAPENTIN
     Route: 065

REACTIONS (3)
  - Migraine [Unknown]
  - Product use in unapproved indication [Unknown]
  - Product quality issue [Unknown]
